FAERS Safety Report 10993323 (Version 6)
Quarter: 2015Q2

REPORT INFORMATION
  Report Type: Report from Study
  Country: FR (occurrence: FR)
  Receive Date: 20150407
  Receipt Date: 20150514
  Transmission Date: 20150821
  Serious: Yes (Hospitalization)
  Sender: FDA-Public Use
  Company Number: FR-ROCHE-1300857

PATIENT
  Age: 64 Year
  Sex: Female
  Weight: 67 kg

DRUGS (25)
  1. POLARAMINE [Suspect]
     Active Substance: DEXCHLORPHENIRAMINE MALEATE
     Indication: PRODUCT USED FOR UNKNOWN INDICATION
     Route: 042
     Dates: start: 20150209, end: 20150209
  2. DOXORUBICINE [Suspect]
     Active Substance: DOXORUBICIN
     Indication: B-CELL LYMPHOMA
     Dosage: 6 COURSES
     Route: 065
     Dates: start: 20121213, end: 20130425
  3. BISOPROLOL [Concomitant]
     Active Substance: BISOPROLOL
     Indication: HYPERTENSION
     Route: 065
     Dates: start: 20140801
  4. PREDNISOLONE. [Suspect]
     Active Substance: PREDNISOLONE
     Indication: B-CELL LYMPHOMA
     Dosage: 6 COURSES
     Route: 065
     Dates: start: 20121213, end: 20130425
  5. CYCLOPHOSPHAMIDE. [Suspect]
     Active Substance: CYCLOPHOSPHAMIDE
     Indication: B-CELL LYMPHOMA
     Dosage: 6 COURSES
     Route: 065
     Dates: start: 20121213, end: 20130425
  6. APROVEL [Concomitant]
     Active Substance: IRBESARTAN
     Indication: HYPERTENSION
  7. RITUXIMAB [Suspect]
     Active Substance: RITUXIMAB
     Dosage: AND 06/MAY/2013
     Route: 042
     Dates: start: 20130425
  8. PARACETAMOL [Concomitant]
     Active Substance: ACETAMINOPHEN
     Indication: PAIN PROPHYLAXIS
     Route: 065
     Dates: start: 20121213
  9. AMOXICILLINE [Concomitant]
     Active Substance: AMOXICILLIN
     Indication: BRONCHITIS
     Route: 065
     Dates: start: 20130501, end: 20130515
  10. PARACETAMOL [Suspect]
     Active Substance: ACETAMINOPHEN
     Indication: PRODUCT USED FOR UNKNOWN INDICATION
     Route: 048
     Dates: start: 20150209, end: 20150209
  11. VINCRISTINE [Suspect]
     Active Substance: VINCRISTINE
     Indication: B-CELL LYMPHOMA
     Route: 065
     Dates: start: 20121213, end: 20130425
  12. UROMITEXAN [Concomitant]
     Active Substance: MESNA
     Route: 065
     Dates: start: 20121213
  13. ACETYLLEUCINE [Concomitant]
     Active Substance: ACETYLLEUCINE
     Indication: VERTIGO
     Route: 065
     Dates: start: 20131105
  14. RITUXIMAB [Suspect]
     Active Substance: RITUXIMAB
     Indication: B-CELL LYMPHOMA
     Dosage: 6 COURSES ?DATE OF LAST DOSE OF RITUXIMAB PRIOR TO THE SAE:  MYOCARDIC ISCHEMIA: 16/MAY/2013, ?DATE
     Route: 042
     Dates: start: 20121213
  15. PREDNISOLONE. [Suspect]
     Active Substance: PREDNISOLONE
     Route: 048
     Dates: start: 20150209, end: 20150209
  16. OMEPRAZOLE. [Concomitant]
     Active Substance: OMEPRAZOLE
     Indication: GASTROOESOPHAGEAL REFLUX DISEASE
     Route: 065
     Dates: start: 201312
  17. KARDEGIC [Concomitant]
     Active Substance: ASPIRIN LYSINE
     Route: 065
     Dates: start: 20150317
  18. ZOPICLONE [Concomitant]
     Active Substance: ZOPICLONE
     Indication: INSOMNIA
     Route: 065
     Dates: start: 20130131
  19. NORSET [Concomitant]
     Active Substance: MIRTAZAPINE
     Indication: DEPRESSION
     Route: 065
     Dates: start: 20130312, end: 20130521
  20. POLARAMINE [Concomitant]
     Active Substance: DEXCHLORPHENIRAMINE MALEATE
     Indication: ALLERGY PROPHYLAXIS
     Route: 065
     Dates: start: 20121213
  21. OGASTORO [Concomitant]
     Active Substance: LANSOPRAZOLE
     Indication: OESOPHAGITIS
     Route: 065
     Dates: start: 20150202
  22. RITUXIMAB [Suspect]
     Active Substance: RITUXIMAB
     Dosage: MAINTENANCE TREATMENT EVERY 2 MONTHS
     Route: 042
     Dates: start: 20130711, end: 20150209
  23. TAHOR [Concomitant]
     Active Substance: ATORVASTATIN CALCIUM
     Indication: HYPERCHOLESTEROLAEMIA
  24. ZOPHREN [Concomitant]
     Active Substance: ONDANSETRON
     Indication: PROPHYLAXIS OF NAUSEA AND VOMITING
     Route: 065
     Dates: start: 20121213
  25. ULCAR [Concomitant]
     Active Substance: SUCRALFATE
     Indication: OESOPHAGITIS
     Route: 065
     Dates: start: 20150202, end: 20150308

REACTIONS (2)
  - Myocardial ischaemia [Recovered/Resolved]
  - Transient ischaemic attack [Recovered/Resolved]

NARRATIVE: CASE EVENT DATE: 20130603
